FAERS Safety Report 21081887 (Version 1)
Quarter: 2022Q3

REPORT INFORMATION
  Report Type: Spontaneous
  Country: US (occurrence: None)
  Receive Date: 20220714
  Receipt Date: 20220714
  Transmission Date: 20221026
  Serious: Yes (Other)
  Sender: FDA-Public Use
  Company Number: None

PATIENT
  Sex: Female

DRUGS (26)
  1. BOTOX [Suspect]
     Active Substance: ONABOTULINUMTOXINA
     Indication: Migraine without aura
     Dosage: 200 UNITS TO BE ADMINISTERED IN PRESCRIBERS OFFICE INTO STANDARDIZED SITES FOR CHRONIC MIGRAINE ?HEA
     Dates: start: 20200522
  2. ACYCLOVIR [Concomitant]
     Active Substance: ACYCLOVIR
  3. AMITRIPTYLINE [Concomitant]
     Active Substance: AMITRIPTYLINE
  4. BUDESONIDE [Concomitant]
     Active Substance: BUDESONIDE
  5. CARBIDOPA\LEVODOPA [Concomitant]
     Active Substance: CARBIDOPA\LEVODOPA
  6. CILOSTAZOL [Concomitant]
     Active Substance: CILOSTAZOL
  7. DIAZEPAM [Concomitant]
     Active Substance: DIAZEPAM
  8. DOXAZOSIN [Concomitant]
     Active Substance: DOXAZOSIN MESYLATE
  9. FLUOCINONIDE [Concomitant]
     Active Substance: FLUOCINONIDE
  10. ACETAMINOPHEN\HYDROCODONE [Concomitant]
     Active Substance: ACETAMINOPHEN\HYDROCODONE
  11. LEVOCARNITIN [Concomitant]
  12. LEVOTHYROXINE [Concomitant]
     Active Substance: LEVOTHYROXINE
  13. LINZESS [Concomitant]
     Active Substance: LINACLOTIDE
  14. METHADONE [Concomitant]
     Active Substance: METHADONE HYDROCHLORIDE
  15. metoprol suc [Concomitant]
  16. MONTELUKAST SODIUM [Concomitant]
     Active Substance: MONTELUKAST SODIUM
  17. MYRBETRIQ [Concomitant]
     Active Substance: MIRABEGRON
  18. NAPROXEN [Concomitant]
     Active Substance: NAPROXEN
  19. ONDANSETRON [Concomitant]
     Active Substance: ONDANSETRON
  20. OXYCODONE [Concomitant]
     Active Substance: OXYCODONE
  21. PANTOPRAZOLE [Concomitant]
     Active Substance: PANTOPRAZOLE
  22. PREDNISONE [Concomitant]
     Active Substance: PREDNISONE
  23. PULMICORT TURBUHALER [Concomitant]
     Active Substance: BUDESONIDE
  24. SUMATRIPTAN [Concomitant]
     Active Substance: SUMATRIPTAN
  25. THEOPHYLLINE [Concomitant]
     Active Substance: THEOPHYLLINE
  26. ZOLPIDEM [Concomitant]
     Active Substance: ZOLPIDEM TARTRATE

REACTIONS (1)
  - Thyroid cancer [None]
